FAERS Safety Report 6924169-X (Version None)
Quarter: 2010Q3

REPORT INFORMATION
  Report Type: 
  Country: None (occurrence: None)
  Receive Date: 20100813
  Receipt Date: 20100805
  Transmission Date: 20110219
  Serious: Yes (Other)
  Sender: FDA-Public Use
  Company Number: US-AMGEN-KDL429987

PATIENT
  Sex: Male
  Weight: 113.5 kg

DRUGS (4)
  1. PROCRIT [Suspect]
     Indication: PRODUCT USED FOR UNKNOWN INDICATION
  2. INTERFERON [Concomitant]
  3. UNSPECIFIED MEDICATION [Concomitant]
  4. UNSPECIFIED ANTIDIABETIC AGENT [Concomitant]

REACTIONS (3)
  - MEMORY IMPAIRMENT [None]
  - NEUROPATHY PERIPHERAL [None]
  - THINKING ABNORMAL [None]
